FAERS Safety Report 10078450 (Version 2)
Quarter: 2014Q2

REPORT INFORMATION
  Report Type: Spontaneous
  Country: US (occurrence: US)
  Receive Date: 20140415
  Receipt Date: 20140528
  Transmission Date: 20141212
  Serious: Yes (Death, Hospitalization)
  Sender: FDA-Public Use
  Company Number: US-JNJFOC-20140404833

PATIENT
  Sex: 0

DRUGS (1)
  1. FENTANYL [Suspect]
     Indication: PRODUCT USED FOR UNKNOWN INDICATION
     Route: 065

REACTIONS (3)
  - Accidental exposure to product [Fatal]
  - Death [Fatal]
  - Investigation [Unknown]
